FAERS Safety Report 19904196 (Version 1)
Quarter: 2021Q3

REPORT INFORMATION
  Report Type: Spontaneous
  Country: US (occurrence: US)
  Receive Date: 20210930
  Receipt Date: 20210930
  Transmission Date: 20211014
  Serious: Yes (Death, Life-Threatening, Other)
  Sender: FDA-Public Use
  Company Number: US-QED THERAPEUTICS-2118993

PATIENT
  Age: 64 Year
  Sex: Female

DRUGS (1)
  1. TRUSELTIQ [Suspect]
     Active Substance: INFIGRATINIB
     Indication: NEOPLASM MALIGNANT
     Route: 048
     Dates: start: 20210831

REACTIONS (1)
  - Death [Fatal]
